FAERS Safety Report 20714649 (Version 1)
Quarter: 2022Q2

REPORT INFORMATION
  Report Type: Spontaneous
  Country: US (occurrence: None)
  Receive Date: 20220415
  Receipt Date: 20220415
  Transmission Date: 20220721
  Serious: Yes (Hospitalization)
  Sender: FDA-Public Use
  Company Number: None

PATIENT
  Sex: Male
  Weight: 68.9 kg

DRUGS (1)
  1. TECHNESCAN [Suspect]
     Active Substance: TECHNETIUM TC-99M OXIDRONATE
     Dates: start: 20220324

REACTIONS (1)
  - Incision site haemorrhage [None]

NARRATIVE: CASE EVENT DATE: 20220405
